FAERS Safety Report 10217556 (Version 1)
Quarter: 2014Q2

REPORT INFORMATION
  Report Type: Spontaneous
  Country: US (occurrence: US)
  Receive Date: 20140604
  Receipt Date: 20140604
  Transmission Date: 20141212
  Serious: No
  Sender: FDA-Public Use
  Company Number: US-GILEAD-2014-0103964

PATIENT
  Sex: Male

DRUGS (4)
  1. ATRIPLA [Suspect]
     Indication: PRODUCT USED FOR UNKNOWN INDICATION
     Route: 065
  2. JUICED GEARED UP NUTRITION [Concomitant]
  3. GNC LIVER HEALTH FORMULA [Concomitant]
  4. URTICA DIOICA [Concomitant]

REACTIONS (1)
  - Weight decreased [Unknown]
